FAERS Safety Report 4463272-3 (Version None)
Quarter: 2004Q3

REPORT INFORMATION
  Report Type: 
  Country: None (occurrence: None)
  Receive Date: 20040930
  Receipt Date: 20040916
  Transmission Date: 20050211
  Serious: Yes (Death, Hospitalization)
  Sender: FDA-Public Use
  Company Number: CH-GLAXOSMITHKLINE-B0346471A

PATIENT
  Age: 4 Year
  Sex: Female

DRUGS (13)
  1. AUGMENTIN [Suspect]
     Indication: BACTERIA URINE IDENTIFIED
     Dosage: 7ML THREE TIMES PER DAY
     Route: 048
     Dates: start: 20040707, end: 20040727
  2. THALIDOMIDE [Suspect]
     Dosage: 50MG PER DAY
     Route: 048
     Dates: start: 20040623, end: 20040804
  3. METHOTREXATE [Suspect]
     Dosage: 10MG WEEKLY
     Route: 058
     Dates: end: 20040804
  4. SANDIMMUNE [Suspect]
     Dosage: 120MG PER DAY
     Route: 048
     Dates: end: 20040804
  5. SOLU-MEDROL [Suspect]
     Route: 042
     Dates: start: 20040325, end: 20040804
  6. PROXEN [Concomitant]
     Dosage: 250MG PER DAY
     Route: 048
     Dates: end: 20040804
  7. NORVASC [Concomitant]
     Dosage: 7.5MG PER DAY
     Route: 048
     Dates: end: 20040804
  8. LEUCOVORIN CALCIUM [Concomitant]
     Dosage: 5MG WEEKLY
     Dates: end: 20040804
  9. CALCIMAGON-D3 [Concomitant]
     Route: 048
     Dates: end: 20040804
  10. MALTOFER [Concomitant]
     Dosage: 14MG PER DAY
     Dates: end: 20040804
  11. NITROFURANTOIN [Concomitant]
     Dosage: 50MG PER DAY
     Route: 048
     Dates: start: 20040804
  12. REMICADE [Concomitant]
     Route: 042
     Dates: start: 20031205, end: 20040614
  13. CEFTRIAXONE [Concomitant]
     Dates: start: 20040729

REACTIONS (12)
  - ARTHRALGIA [None]
  - BLOOD PHOSPHORUS INCREASED [None]
  - C-REACTIVE PROTEIN INCREASED [None]
  - CARDIAC ARREST [None]
  - DYSPEPSIA [None]
  - GASTROENTERITIS [None]
  - HAEMOGLOBIN DECREASED [None]
  - JOINT SWELLING [None]
  - PYREXIA [None]
  - RESPIRATION ABNORMAL [None]
  - SEPSIS [None]
  - SUDDEN DEATH [None]
